FAERS Safety Report 7355595-5 (Version None)
Quarter: 2011Q1

REPORT INFORMATION
  Report Type: 
  Country: None (occurrence: None)
  Receive Date: 20110316
  Receipt Date: 20110310
  Transmission Date: 20110831
  Serious: Yes (Hospitalization)
  Sender: FDA-Public Use
  Company Number: B0705403A

PATIENT
  Sex: Male

DRUGS (11)
  1. COLCHICINE [Suspect]
     Dosage: 1MG PER DAY
     Route: 048
     Dates: start: 20110109, end: 20110124
  2. AMIODARONE HCL [Concomitant]
     Dosage: 100MG PER DAY
     Route: 048
  3. SERESTA [Concomitant]
     Route: 048
     Dates: start: 20110111
  4. SPASFON [Concomitant]
     Dosage: 1UNIT THREE TIMES PER DAY
     Route: 048
     Dates: start: 20110112
  5. SELOKEN [Suspect]
     Dosage: 25MG TWICE PER DAY
     Route: 048
     Dates: end: 20110118
  6. KARDEGIC [Concomitant]
     Dosage: 160MG PER DAY
     Route: 048
     Dates: start: 20101231
  7. CALCIPARINE [Suspect]
     Dosage: .2ML TWICE PER DAY
     Route: 058
     Dates: start: 20101231, end: 20110110
  8. AUGMENTIN '125' [Suspect]
     Dosage: 1G THREE TIMES PER DAY
     Route: 048
     Dates: start: 20110107, end: 20110112
  9. ATARAX [Suspect]
     Dosage: 25MG PER DAY
     Route: 048
     Dates: start: 20101231, end: 20110111
  10. XATRAL [Concomitant]
     Dosage: 10MG PER DAY
     Route: 048
     Dates: start: 20110111
  11. LOXEN [Concomitant]
     Indication: HYPERTENSION
     Dosage: 20MG THREE TIMES PER DAY
     Route: 048
     Dates: start: 20101231

REACTIONS (1)
  - HEPATOCELLULAR INJURY [None]
